FAERS Safety Report 10098488 (Version 1)
Quarter: 2014Q2

REPORT INFORMATION
  Report Type: Spontaneous
  Country: GB (occurrence: None)
  Receive Date: 20140421
  Receipt Date: 20140421
  Transmission Date: 20141212
  Serious: Yes (Hospitalization)
  Sender: FDA-Public Use
  Company Number: 2014-001096

PATIENT
  Age: 92 Year
  Sex: Male

DRUGS (6)
  1. DORYX [Suspect]
     Route: 048
     Dates: start: 20140318
  2. WARFARIN [Suspect]
     Indication: ATRIAL FIBRILLATION
     Dosage: VARIABLE ACCORDING TO INR. INR RANGE 2-3. DOSE ADMISSION: 1.5 TUE + SAT
     Route: 048
     Dates: start: 20130408, end: 20140321
  3. ALLOPURINOL (ALLOPURINOL) [Concomitant]
  4. AMLODIPINE (AMLODIPINE) [Concomitant]
  5. BISOPROLOL (BISOPROLOL) [Concomitant]
  6. FUROSEMIDE (FUROSEMIDE) [Concomitant]

REACTIONS (2)
  - Upper gastrointestinal haemorrhage [None]
  - Potentiating drug interaction [None]
